FAERS Safety Report 12707221 (Version 2)
Quarter: 2016Q4

REPORT INFORMATION
  Report Type: Spontaneous
  Country: US (occurrence: US)
  Receive Date: 20160901
  Receipt Date: 20161227
  Transmission Date: 20170207
  Serious: No
  Sender: FDA-Public Use
  Company Number: US-TEVA-683587ACC

PATIENT
  Age: 27 Year
  Sex: Female
  Weight: 80.81 kg

DRUGS (4)
  1. SYNTHROID [Concomitant]
     Active Substance: LEVOTHYROXINE SODIUM
  2. PARAGARD T 380A [Suspect]
     Active Substance: COPPER
     Dates: start: 20160818
  3. PARAGARD T 380A [Suspect]
     Active Substance: COPPER
     Indication: CONTRACEPTION
     Dates: start: 20160620, end: 20160801
  4. VITAMINS [Concomitant]
     Active Substance: VITAMINS

REACTIONS (3)
  - Vaginal infection [Recovered/Resolved]
  - Device expulsion [Recovered/Resolved]
  - Vaginal odour [Unknown]

NARRATIVE: CASE EVENT DATE: 20160719
